FAERS Safety Report 9714170 (Version 1)
Quarter: 2013Q4

REPORT INFORMATION
  Report Type: Spontaneous
  Country: US (occurrence: US)
  Receive Date: 20131126
  Receipt Date: 20131126
  Transmission Date: 20140711
  Serious: No
  Sender: FDA-Public Use
  Company Number: US-GILEAD-2008-0019171

PATIENT
  Sex: Female
  Weight: 103.42 kg

DRUGS (9)
  1. LETAIRIS [Suspect]
     Indication: PULMONARY ARTERIAL HYPERTENSION
     Route: 048
     Dates: start: 20081108
  2. KLONOPIN [Concomitant]
     Route: 048
  3. ZOCOR [Concomitant]
     Route: 048
  4. LASIX [Concomitant]
     Route: 048
  5. HYDROCHLOROTHIALZIDE [Concomitant]
     Route: 048
  6. ZETIA [Concomitant]
     Route: 048
  7. MULTIVITAMIN [Concomitant]
     Route: 048
  8. POTASSIUM CHLORIDE [Concomitant]
     Route: 048
  9. CALCIUM [Concomitant]
     Route: 048

REACTIONS (4)
  - Ulcer [Unknown]
  - Abdominal pain upper [Unknown]
  - Dyspnoea [Unknown]
  - Constipation [Unknown]
